FAERS Safety Report 8594047 (Version 3)
Quarter: 2012Q4

REPORT INFORMATION
  Report Type: Report from Study
  Country: US (occurrence: US)
  Receive Date: 20120604
  Receipt Date: 20120905
  Transmission Date: 20130627
  Serious: Yes (Hospitalization)
  Sender: FDA-Public Use
  Company Number: US-SANOFI-AVENTIS-2012SA037279

PATIENT
  Age: 85 Year
  Sex: Male
  Weight: 90.2 kg

DRUGS (16)
  1. DOCETAXEL [Suspect]
     Indication: PROSTATE CANCER
     Route: 042
     Dates: start: 20120516, end: 20120516
  2. ASPIRIN ^BAYER^ [Concomitant]
  3. CARVEDILOL [Concomitant]
  4. COENZYME Q10 [Concomitant]
  5. CRESTOR /UNK/ [Concomitant]
     Route: 048
     Dates: start: 20120517, end: 20120518
  6. PREDNISONE [Concomitant]
     Indication: PROSTATE CANCER
     Route: 048
  7. DEXAMETHASONE [Concomitant]
     Indication: PROSTATE CANCER
     Route: 048
     Dates: start: 20120515
  8. FUROSEMIDE [Concomitant]
     Route: 048
     Dates: start: 20120516, end: 20120516
  9. FUROSEMIDE [Concomitant]
     Route: 048
     Dates: start: 20120517, end: 20120518
  10. ISOSORBIDE MONONITRATE [Concomitant]
     Route: 048
     Dates: start: 20120517
  11. MULTIVITAMINS [Concomitant]
  12. OMEGA 3 [Concomitant]
  13. PLAVIX [Concomitant]
  14. ALL OTHER THERAPEUTIC PRODUCTS [Concomitant]
     Route: 048
     Dates: start: 20120518, end: 20120518
  15. VITAMIN D [Concomitant]
     Dosage: 2000
     Route: 048
     Dates: start: 20120517, end: 20120518
  16. RANOLAZINE [Concomitant]

REACTIONS (1)
  - Acute coronary syndrome [Recovered/Resolved]
